FAERS Safety Report 6938064-3 (Version None)
Quarter: 2010Q3

REPORT INFORMATION
  Report Type: 
  Country: None (occurrence: None)
  Receive Date: 20100824
  Receipt Date: 20100812
  Transmission Date: 20110219
  Serious: Yes (Hospitalization)
  Sender: FDA-Public Use
  Company Number: US-BAYER-201013413NA

PATIENT
  Age: 22 Year
  Sex: Female
  Weight: 88 kg

DRUGS (3)
  1. YAZ [Suspect]
     Indication: CONTRACEPTION
     Route: 048
     Dates: start: 20080801, end: 20090213
  2. LORTAB [Concomitant]
     Indication: PAIN
     Route: 048
     Dates: start: 20080801, end: 20090401
  3. NAPROXEN [Concomitant]
     Dates: start: 20080101, end: 20080101

REACTIONS (8)
  - CHEST PAIN [None]
  - DEEP VEIN THROMBOSIS [None]
  - DYSPNOEA [None]
  - OEDEMA PERIPHERAL [None]
  - PAIN IN EXTREMITY [None]
  - PULMONARY EMBOLISM [None]
  - WEIGHT BEARING DIFFICULTY [None]
  - WITHDRAWAL BLEED [None]
